FAERS Safety Report 9972753 (Version 3)
Quarter: 2014Q2

REPORT INFORMATION
  Report Type: Spontaneous
  Country: US (occurrence: US)
  Receive Date: 20140306
  Receipt Date: 20140414
  Transmission Date: 20141212
  Serious: No
  Sender: FDA-Public Use
  Company Number: US-PFIZER INC-2014059544

PATIENT
  Sex: Female

DRUGS (9)
  1. ZITHROMAX [Suspect]
     Dosage: UNK
  2. KEFLEX [Suspect]
     Dosage: UNK
  3. CIPRO [Suspect]
     Dosage: UNK
  4. BIAXIN [Suspect]
     Dosage: UNK
  5. CODEINE [Suspect]
     Dosage: UNK
  6. DECADRON [Suspect]
     Dosage: UNK
  7. LORTAB [Suspect]
     Dosage: UNK
  8. DEMEROL [Suspect]
     Dosage: UNK
  9. PHENERGAN [Suspect]
     Dosage: UNK

REACTIONS (1)
  - Drug hypersensitivity [Unknown]
